FAERS Safety Report 5096328-5 (Version None)
Quarter: 2006Q3

REPORT INFORMATION
  Report Type: 
  Country: None (occurrence: None)
  Receive Date: 20060830
  Receipt Date: 20060815
  Transmission Date: 20061208
  Serious: Yes (Hospitalization)
  Sender: FDA-Public Use
  Company Number: 2006BI011174

PATIENT
  Age: 24 Year
  Sex: Female

DRUGS (2)
  1. AVONEX [Suspect]
     Indication: MULTIPLE SCLEROSIS
  2. NONI JUICE [Concomitant]

REACTIONS (3)
  - AUTOANTIBODY POSITIVE [None]
  - HEPATIC FAILURE [None]
  - HEPATITIS FULMINANT [None]
